FAERS Safety Report 10948660 (Version 2)
Quarter: 2015Q1

REPORT INFORMATION
  Report Type: Spontaneous
  Country: US (occurrence: US)
  Receive Date: 20150324
  Receipt Date: 20150325
  Transmission Date: 20150721
  Serious: Yes (Other)
  Sender: FDA-Public Use
  Company Number: US-TEVA-548691USA

PATIENT
  Sex: Male

DRUGS (2)
  1. NUVIGIL [Suspect]
     Active Substance: ARMODAFINIL
     Route: 065
  2. NUVIGIL [Suspect]
     Active Substance: ARMODAFINIL
     Indication: BIPOLAR DISORDER
     Route: 065

REACTIONS (5)
  - Energy increased [Unknown]
  - Mania [Unknown]
  - Drug ineffective [Recovered/Resolved]
  - Obsessive-compulsive disorder [Unknown]
  - Agitation [Unknown]
